FAERS Safety Report 8791566 (Version 1)
Quarter: 2012Q4

REPORT INFORMATION
  Report Type: Spontaneous
  Country: DE (occurrence: None)
  Receive Date: 20120913
  Receipt Date: 20120913
  Transmission Date: 20130627
  Serious: Yes (Other)
  Sender: FDA-Public Use
  Company Number: AUR-APL-2012-03937

PATIENT
  Sex: Male
  Weight: 85 kg

DRUGS (5)
  1. SIMVASTATIN (SIMVASTATIN) [Suspect]
     Indication: HYPERCHOLESTEROLAEMIA
  2. SORTIS [Suspect]
  3. EZETROL [Suspect]
  4. INEGY [Suspect]
  5. FLUVASTATIN [Suspect]

REACTIONS (1)
  - Musculoskeletal discomfort [None]
